FAERS Safety Report 9410083 (Version 1)
Quarter: 2013Q3

REPORT INFORMATION
  Report Type: Spontaneous
  Country: GB (occurrence: GB)
  Receive Date: 20130719
  Receipt Date: 20130719
  Transmission Date: 20140515
  Serious: Yes (Death, Hospitalization, Other)
  Sender: FDA-Public Use
  Company Number: GB-JNJFOC-20130709801

PATIENT
  Sex: 0

DRUGS (4)
  1. DOXORUBICIN HYDROCHLORIDE [Suspect]
     Indication: SMALL CELL LUNG CANCER
     Dosage: ON DAY 1 FOR 3 WEEKS
     Route: 042
  2. CYCLOPHOSPHAMIDE [Suspect]
     Indication: SMALL CELL LUNG CANCER
     Dosage: 1 G/M2 ON DAY 1 FOR 3 WEEKS
     Route: 042
  3. ETOPOSIDE [Suspect]
     Indication: SMALL CELL LUNG CANCER
     Dosage: ON DAY 1 FOR 3 WEEKS
     Route: 042
  4. ETOPOSIDE [Suspect]
     Indication: SMALL CELL LUNG CANCER
     Dosage: FOR 2 DAYS FOR 3 WEEKS
     Route: 048

REACTIONS (16)
  - Toxicity to various agents [Fatal]
  - Anaemia [Unknown]
  - Thrombocytopenia [Unknown]
  - Nausea [Unknown]
  - Vomiting [Unknown]
  - Constipation [Unknown]
  - Stomatitis [Unknown]
  - Lethargy [Unknown]
  - Decreased appetite [Unknown]
  - Alopecia [Unknown]
  - Dysphonia [Unknown]
  - Disease progression [Unknown]
  - Neutropenia [Unknown]
  - Infection [Unknown]
  - Off label use [Unknown]
  - Neuropathy peripheral [Unknown]
